FAERS Safety Report 16269380 (Version 4)
Quarter: 2019Q3

REPORT INFORMATION
  Report Type: Spontaneous
  Country: US (occurrence: US)
  Receive Date: 20190503
  Receipt Date: 20190826
  Transmission Date: 20191004
  Serious: No
  Sender: FDA-Public Use
  Company Number: US-VERTEX PHARMACEUTICALS-2018-002043

PATIENT
  Age: 14 Year
  Sex: Female
  Weight: 73 kg

DRUGS (19)
  1. DESMOPRESSIN [Concomitant]
     Active Substance: DESMOPRESSIN
  2. DORNASE ALFA. [Concomitant]
     Active Substance: DORNASE ALFA
     Dosage: 2.5 MG, QD
     Route: 055
  3. ALBUTEROL [SALBUTAMOL] [Concomitant]
     Active Substance: ALBUTEROL
     Dosage: 2.5 MG, PRN
     Route: 055
  4. ORKAMBI [Suspect]
     Active Substance: IVACAFTOR\LUMACAFTOR
     Indication: CYSTIC FIBROSIS
     Dosage: 2 DOSAGE FORM (200/125 MG EACH), BID
     Route: 048
     Dates: start: 20171006, end: 201904
  5. ALBUTEROL [SALBUTAMOL] [Concomitant]
     Active Substance: ALBUTEROL
     Dosage: 2 PUFFS, QD
     Route: 055
  6. MYRBETRIQ [Concomitant]
     Active Substance: MIRABEGRON
     Dosage: 1 DOSAGE FORM, QD
     Route: 048
  7. OMEPRAZOLE. [Concomitant]
     Active Substance: OMEPRAZOLE
     Dosage: 40 MG, QD
     Route: 048
  8. DICYCLOMINE [DICYCLOVERINE] [Concomitant]
     Dosage: UNK, PRN
  9. OMEGA 3 DHA [DOCOSAHEXAENOIC ACID] [Concomitant]
  10. VITAMIN D3 [Concomitant]
     Active Substance: CHOLECALCIFEROL
     Dosage: 2 DOSAGE FORM, QD
     Route: 048
  11. TURMERIC [CURCUMA LONGA] [Concomitant]
     Route: 048
  12. PROAIR HFA [Concomitant]
     Active Substance: ALBUTEROL SULFATE
     Dosage: 2 PUFFS, PRN
     Route: 055
  13. SODIUM CHLORIDE. [Concomitant]
     Active Substance: SODIUM CHLORIDE
     Dosage: 4 MILLILITER, TID
     Route: 055
  14. PANCRELIPASE. [Concomitant]
     Active Substance: PANCRELIPASE
     Dosage: 25000 UNITS, TID
     Route: 048
  15. IMIPRAMINE [Concomitant]
     Active Substance: IMIPRAMINE
  16. ZENPEP [Concomitant]
     Active Substance: PANCRELIPASE AMYLASE\PANCRELIPASE LIPASE\PANCRELIPASE PROTEASE
     Dosage: 3 CAPSULES BEFORE MEALS AND 2 WITH SNACKS
     Route: 048
  17. FISH OIL [Concomitant]
     Active Substance: FISH OIL
     Dosage: 1000 MG, QD
     Route: 048
  18. LESSINA [Concomitant]
     Active Substance: ETHINYL ESTRADIOL\LEVONORGESTREL
  19. HYPERTONIC SALINE SOLUTION [Concomitant]
     Active Substance: SODIUM CHLORIDE

REACTIONS (10)
  - Gastrooesophageal reflux disease [Unknown]
  - Abdominal pain [Unknown]
  - Hepatic steatosis [Unknown]
  - Weight increased [Recovering/Resolving]
  - Depression [Recovering/Resolving]
  - Fluid retention [Recovering/Resolving]
  - Anxiety [Recovering/Resolving]
  - Fatigue [Unknown]
  - Abdominal distension [Unknown]
  - Diarrhoea [Unknown]

NARRATIVE: CASE EVENT DATE: 2018
